FAERS Safety Report 5343605-6 (Version None)
Quarter: 2007Q2

REPORT INFORMATION
  Report Type: 
  Country: None (occurrence: None)
  Receive Date: 20070416
  Receipt Date: 20070123
  Transmission Date: 20071010
  Serious: No
  Sender: FDA-Public Use
  Company Number: 2007SP000278

PATIENT
  Age: 60 Year
  Sex: Female
  Weight: 68.0396 kg

DRUGS (3)
  1. LUNESTA [Suspect]
     Indication: INSOMNIA
     Dosage: 1 MG; HS; ORAL
     Route: 048
     Dates: start: 20070101, end: 20070101
  2. TRAZODONE HCL [Concomitant]
  3. MULTIVITAMIN [Concomitant]

REACTIONS (3)
  - NAUSEA [None]
  - PARADOXICAL DRUG REACTION [None]
  - RASH [None]
